FAERS Safety Report 6024129-X (Version None)
Quarter: 2008Q4

REPORT INFORMATION
  Report Type: 
  Country: None (occurrence: None)
  Receive Date: 20081230
  Receipt Date: 20081226
  Transmission Date: 20090506
  Serious: Yes (Hospitalization)
  Sender: FDA-Public Use
  Company Number: JP-ALLERGAN-0815525US

PATIENT
  Sex: Male

DRUGS (13)
  1. BOTULINUM TOXIN TYPE A [Suspect]
     Indication: TORTICOLLIS
     Dosage: 50 UNITS, SINGLE
     Route: 030
     Dates: start: 20080515, end: 20080515
  2. BOTULINUM TOXIN TYPE A [Suspect]
     Dosage: 50 UNITS, SINGLE
     Route: 030
     Dates: start: 20071025, end: 20071025
  3. THEOPHYLLINE [Concomitant]
     Indication: ASTHMA
     Dosage: 180 MG, QD
     Route: 048
  4. TRANILAST [Concomitant]
     Indication: PROPHYLAXIS
     Dosage: 100 MG, QD
     Route: 048
  5. TEPRENONE [Concomitant]
     Indication: PROPHYLAXIS AGAINST GASTROINTESTINAL ULCER
     Dosage: 50 MG, QD
     Route: 048
  6. FUDOSTEINE [Concomitant]
     Indication: BRONCHITIS CHRONIC
     Dosage: 600 MG, QD
     Route: 048
  7. CARBOCISTEINE [Concomitant]
     Indication: BRONCHITIS CHRONIC
     Dosage: 500 MG, QD
     Route: 048
  8. LYSOZYME HYDROCHLORIDE [Concomitant]
     Indication: CHRONIC SINUSITIS
     Dosage: 50 MG, QD
     Route: 048
  9. BROMHEXINE HYDROCHLORIDE [Concomitant]
     Indication: BRONCHITIS CHRONIC
     Dosage: 5 MG, QD
     Route: 048
  10. RETINOL W/CALCIFEROL [Concomitant]
     Indication: VITAMIN SUPPLEMENTATION
     Dosage: 1.5 G, QD
     Route: 048
  11. SUCRALFATE [Concomitant]
     Indication: PROPHYLAXIS AGAINST GASTROINTESTINAL ULCER
     Dosage: 2 G, QD
     Route: 048
  12. CHINESE MEDICINE [Concomitant]
     Indication: CONSTIPATION
     Route: 048
  13. LANSOPRAZOLE [Concomitant]
     Indication: GASTROOESOPHAGEAL REFLUX DISEASE
     Dosage: 15 MG, QD
     Route: 048

REACTIONS (2)
  - ACUTE RESPIRATORY FAILURE [None]
  - DYSPHAGIA [None]
